FAERS Safety Report 8880033 (Version 1)
Quarter: 2012Q4

REPORT INFORMATION
  Report Type: 
  Country: BR (occurrence: BR)
  Receive Date: 20121031
  Receipt Date: 20121031
  Transmission Date: 20130627
  Serious: Yes (Other)
  Sender: FDA-Public Use
  Company Number: BR-AMGEN-BRASP2012069086

PATIENT
  Age: 47 Year
  Sex: Male
  Weight: 90 kg

DRUGS (3)
  1. ENBREL [Suspect]
     Indication: PSORIATIC ARTHROPATHY
     Dosage: 25 mg, 2x/week, powder and solvent for solution for injection
     Dates: start: 201106, end: 2011
  2. ENBREL [Suspect]
     Dosage: 50 mg, 2x/week, powder and solvent for solution for injection
     Dates: start: 2011, end: 201110
  3. ENBREL [Suspect]
     Dosage: 50 mg, 2x/week
     Route: 058
     Dates: start: 201110

REACTIONS (2)
  - Diabetes mellitus [Unknown]
  - Arthralgia [Unknown]
